FAERS Safety Report 23484643 (Version 2)
Quarter: 2024Q1

REPORT INFORMATION
  Report Type: Report from Study
  Country: AU (occurrence: AU)
  Receive Date: 20240206
  Receipt Date: 20240215
  Transmission Date: 20240410
  Serious: Yes (Other)
  Sender: FDA-Public Use
  Company Number: AU-CELLTRION INC.-2024AU002267

PATIENT

DRUGS (4)
  1. INFLIXIMAB [Suspect]
     Active Substance: INFLIXIMAB
     Indication: Colitis ulcerative
     Dosage: 120 MG EVERY TWO WEEKS (FORTNIGHTLY)
     Route: 058
     Dates: start: 20230921
  2. INFLIXIMAB [Suspect]
     Active Substance: INFLIXIMAB
     Dosage: 120 MG EVERY TWO WEEKS (FORTNIGHTLY)
     Route: 058
     Dates: start: 20240125
  3. PREDNISOLONE [Concomitant]
     Active Substance: PREDNISOLONE
  4. MESALAMINE [Concomitant]
     Active Substance: MESALAMINE
     Dosage: 2 MG, DAILY

REACTIONS (2)
  - Colitis ulcerative [Recovering/Resolving]
  - Wrong technique in product usage process [Unknown]

NARRATIVE: CASE EVENT DATE: 20240111
